FAERS Safety Report 6078579-6 (Version None)
Quarter: 2009Q1

REPORT INFORMATION
  Report Type: 
  Country: None (occurrence: None)
  Receive Date: 20090212
  Receipt Date: 20090129
  Transmission Date: 20090719
  Serious: Yes (Death)
  Sender: FDA-Public Use
  Company Number: 2009EU000436

PATIENT
  Sex: Male
  Weight: 60 kg

DRUGS (6)
  1. PROGRAF [Suspect]
     Indication: RENAL TRANSPLANT
     Dosage: 4 MG, D, ORAL
     Route: 048
     Dates: start: 20081231
  2. MYFORTIC [Suspect]
     Indication: RENAL TRANSPLANT
     Dosage: 1440 MG, D, ORAL
     Route: 048
     Dates: start: 20080601, end: 20081224
  3. PREDNISOLONE [Suspect]
     Indication: RENAL TRANSPLANT
     Dosage: 30 MG, D, ORAL
     Route: 048
     Dates: start: 20080601
  4. CARVEDILOL [Concomitant]
  5. OMEZ [Concomitant]
  6. CIFRAN (CIPROFLOXACIN) [Concomitant]

REACTIONS (5)
  - COLITIS ULCERATIVE [None]
  - CONDITION AGGRAVATED [None]
  - CYTOMEGALOVIRUS INFECTION [None]
  - DEHYDRATION [None]
  - ENTEROCOLITIS [None]
